FAERS Safety Report 15942636 (Version 4)
Quarter: 2019Q2

REPORT INFORMATION
  Report Type: Spontaneous
  Country: US (occurrence: US)
  Receive Date: 20190209
  Receipt Date: 20190501
  Transmission Date: 20190711
  Serious: Yes (Hospitalization, Other)
  Sender: FDA-Public Use
  Company Number: US-ASTRAZENECA-2018SF26035

PATIENT
  Age: 448 Month
  Sex: Male
  Weight: 72 kg

DRUGS (36)
  1. PRILOSEC [Suspect]
     Active Substance: OMEPRAZOLE MAGNESIUM
     Route: 048
  2. DOXAZOSIN [Concomitant]
     Active Substance: DOXAZOSIN\DOXAZOSIN MESYLATE
  3. ZOFRAN [Concomitant]
     Active Substance: ONDANSETRON HYDROCHLORIDE
  4. PREVACID 24 HR [Suspect]
     Active Substance: LANSOPRAZOLE
     Route: 065
  5. ASPIRIN. [Concomitant]
     Active Substance: ASPIRIN
  6. RITONAVIR. [Concomitant]
     Active Substance: RITONAVIR
  7. PREVACID [Suspect]
     Active Substance: LANSOPRAZOLE
     Route: 065
  8. ATORVASTATIN [Concomitant]
     Active Substance: ATORVASTATIN
  9. SENSIPAR [Concomitant]
     Active Substance: CINACALCET HYDROCHLORIDE
  10. NEXIUM [Suspect]
     Active Substance: ESOMEPRAZOLE MAGNESIUM
     Route: 048
  11. NEXIUM 24HR [Suspect]
     Active Substance: ESOMEPRAZOLE MAGNESIUM
     Route: 048
  12. ALLOPURINOL. [Concomitant]
     Active Substance: ALLOPURINOL
  13. TYLENOL [Concomitant]
     Active Substance: ACETAMINOPHEN
  14. CALCITROL [Concomitant]
     Active Substance: CALCITRIOL
  15. ATORVASTATIN [Concomitant]
     Active Substance: ATORVASTATIN
  16. CEFDINIR. [Concomitant]
     Active Substance: CEFDINIR
  17. FOSRENOL [Concomitant]
     Active Substance: LANTHANUM CARBONATE
  18. GENTAMYCIN [Concomitant]
     Active Substance: GENTAMICIN
  19. LISINOPRIL. [Concomitant]
     Active Substance: LISINOPRIL
  20. AMOXICILLIN. [Concomitant]
     Active Substance: AMOXICILLIN
  21. IBUPROFEN. [Concomitant]
     Active Substance: IBUPROFEN
  22. PRILOSEC [Suspect]
     Active Substance: OMEPRAZOLE MAGNESIUM
     Route: 048
     Dates: start: 20080101, end: 20180625
  23. CARVEDILOL. [Concomitant]
     Active Substance: CARVEDILOL
  24. CEFDINIR. [Concomitant]
     Active Substance: CEFDINIR
  25. DARUNAVIR [Concomitant]
     Active Substance: DARUNAVIR
  26. REMERON [Concomitant]
     Active Substance: MIRTAZAPINE
  27. PRILOSEC OTC [Suspect]
     Active Substance: OMEPRAZOLE MAGNESIUM
     Route: 048
     Dates: start: 20160414
  28. PREVACID [Suspect]
     Active Substance: LANSOPRAZOLE
     Route: 065
     Dates: start: 20080101, end: 20180625
  29. CALCITRIOL. [Concomitant]
     Active Substance: CALCITRIOL
  30. NITROSTAT [Concomitant]
     Active Substance: NITROGLYCERIN
  31. ONDANSETRON [Concomitant]
     Active Substance: ONDANSETRON
  32. TUMS [Concomitant]
     Active Substance: CALCIUM CARBONATE
  33. NEXIUM [Suspect]
     Active Substance: ESOMEPRAZOLE MAGNESIUM
     Route: 048
  34. PRILOSEC OTC [Suspect]
     Active Substance: OMEPRAZOLE MAGNESIUM
     Route: 048
     Dates: start: 20080101, end: 20180625
  35. TRIAMCINOLONE [Concomitant]
     Active Substance: TRIAMCINOLONE
  36. MARINOL [Concomitant]
     Active Substance: DRONABINOL

REACTIONS (6)
  - Nephrogenic anaemia [Unknown]
  - Chronic kidney disease [Unknown]
  - End stage renal disease [Unknown]
  - Renal injury [Unknown]
  - Chronic kidney disease-mineral and bone disorder [Unknown]
  - Hyperparathyroidism secondary [Unknown]

NARRATIVE: CASE EVENT DATE: 201302
